FAERS Safety Report 24033310 (Version 1)
Quarter: 2024Q3

REPORT INFORMATION
  Report Type: Spontaneous
  Country: US (occurrence: US)
  Receive Date: 20240701
  Receipt Date: 20240701
  Transmission Date: 20241017
  Serious: Yes (Life-Threatening, Hospitalization, Other)
  Sender: TWI PHARMACEUTICALS
  Company Number: US-TWI PHARMACEUTICAL, INC-2024SCTW000124

PATIENT

DRUGS (1)
  1. FORFIVO XL [Suspect]
     Active Substance: BUPROPION HYDROCHLORIDE
     Indication: Product used for unknown indication
     Dosage: UNK UNK, SINGLE
     Route: 065

REACTIONS (12)
  - Suicide attempt [Unknown]
  - Status epilepticus [Recovered/Resolved]
  - Cytotoxic oedema [Recovered/Resolved]
  - Cerebral disorder [Recovered/Resolved]
  - Intentional overdose [Unknown]
  - Pupil fixed [Recovered/Resolved]
  - Areflexia [Recovered/Resolved]
  - Electrocardiogram QRS complex prolonged [Recovered/Resolved]
  - Electrocardiogram QT prolonged [Recovered/Resolved]
  - Coma scale abnormal [Recovered/Resolved]
  - Encephalopathy [Recovered/Resolved]
  - Hypotension [Recovered/Resolved]
